FAERS Safety Report 17397919 (Version 1)
Quarter: 2020Q1

REPORT INFORMATION
  Report Type: Spontaneous
  Country: US (occurrence: US)
  Receive Date: 20200210
  Receipt Date: 20200210
  Transmission Date: 20200409
  Serious: No
  Sender: FDA-Public Use
  Company Number: US-WOCKHARDT USA, LLC-2080039

PATIENT
  Age: 64 Year
  Sex: Female
  Weight: 64.09 kg

DRUGS (4)
  1. CARVEDILOL. [Concomitant]
     Active Substance: CARVEDILOL
  2. SOLIRIS [Concomitant]
     Active Substance: ECULIZUMAB
     Route: 042
  3. AZITHROMYCIN ANHYDROUS. [Suspect]
     Active Substance: AZITHROMYCIN ANHYDROUS
     Indication: INFECTION
     Route: 048
     Dates: start: 20200124
  4. NIFEDIPINE. [Concomitant]
     Active Substance: NIFEDIPINE

REACTIONS (1)
  - Abdominal pain [Recovered/Resolved]

NARRATIVE: CASE EVENT DATE: 20200124
